FAERS Safety Report 4469296-4 (Version None)
Quarter: 2004Q4

REPORT INFORMATION
  Report Type: 
  Country: None (occurrence: None)
  Receive Date: 20041008
  Receipt Date: 20030926
  Transmission Date: 20050328
  Serious: No
  Sender: FDA-Public Use
  Company Number: US-BRISTOL-MYERS SQUIBB COMPANY-12395281

PATIENT
  Age: 75 Year
  Sex: Female
  Weight: 72 kg

DRUGS (13)
  1. AVAPRO [Suspect]
     Indication: HYPERTENSION
     Route: 048
     Dates: start: 20030601
  2. ATENOLOL [Concomitant]
  3. LESCOL [Concomitant]
  4. SYNTHROID [Concomitant]
  5. RESTASIS [Concomitant]
     Route: 047
  6. MULTI-VITAMIN [Concomitant]
  7. CHROMIUM [Concomitant]
  8. CO-Q-10 PLUS [Concomitant]
  9. VITAMIN E [Concomitant]
  10. GARLIC [Concomitant]
  11. VITAMIN C [Concomitant]
  12. CORAL CALCIUM [Concomitant]
  13. CIDER VINEGAR [Concomitant]

REACTIONS (2)
  - DYSGEUSIA [None]
  - TONGUE COATED [None]
